FAERS Safety Report 9759621 (Version 1)
Quarter: 2013Q4

REPORT INFORMATION
  Report Type: Spontaneous
  Country: US (occurrence: US)
  Receive Date: 20131216
  Receipt Date: 20131216
  Transmission Date: 20140711
  Serious: No
  Sender: FDA-Public Use
  Company Number: US-GILEAD-2010-0028471

PATIENT
  Sex: Female
  Weight: 78.02 kg

DRUGS (13)
  1. LETAIRIS [Suspect]
     Indication: PULMONARY ARTERIAL HYPERTENSION
     Route: 048
     Dates: start: 20100324
  2. ALLOPURINOL [Concomitant]
  3. MECLIZINE [Concomitant]
  4. FLEXERIL [Concomitant]
  5. PLAQUENIL [Concomitant]
  6. METOPROLOL [Concomitant]
  7. TRAMADOL [Concomitant]
  8. WELLBUTRIN [Concomitant]
  9. HYDROCODONE [Concomitant]
  10. COLCRYS [Concomitant]
  11. NUTRA TEAR [Concomitant]
  12. LEVOTHYROXINE [Concomitant]
  13. VITAMIN D [Concomitant]

REACTIONS (1)
  - Headache [Unknown]
